FAERS Safety Report 4831439-8 (Version None)
Quarter: 2005Q4

REPORT INFORMATION
  Report Type: 
  Country: None (occurrence: None)
  Receive Date: 20051116
  Receipt Date: 20051013
  Transmission Date: 20060501
  Serious: Yes (Hospitalization)
  Sender: FDA-Public Use
  Company Number: 2005BI017659

PATIENT
  Age: 72 Year
  Sex: Female

DRUGS (1)
  1. AVONEX [Suspect]
     Indication: MULTIPLE SCLEROSIS
     Dosage: 30 UG;QW;IM
     Route: 030
     Dates: start: 19970707, end: 20050101

REACTIONS (5)
  - CONDITION AGGRAVATED [None]
  - MULTIPLE SCLEROSIS [None]
  - MUSCLE SPASMS [None]
  - PNEUMONIA [None]
  - SPEECH DISORDER [None]
